FAERS Safety Report 12662930 (Version 1)
Quarter: 2016Q3

REPORT INFORMATION
  Report Type: Spontaneous
  Country: US (occurrence: US)
  Receive Date: 20160818
  Receipt Date: 20160818
  Transmission Date: 20161109
  Serious: No
  Sender: FDA-Public Use
  Company Number: PHEH2016US020548

PATIENT
  Age: 42 Year
  Sex: Female

DRUGS (1)
  1. FORADIL [Suspect]
     Active Substance: FORMOTEROL FUMARATE
     Indication: ASTHMA
     Dosage: 12 UG, BID
     Route: 055

REACTIONS (4)
  - Nervousness [Unknown]
  - Asthma [Unknown]
  - Feeling abnormal [Unknown]
  - Feeling jittery [Unknown]
